FAERS Safety Report 14436265 (Version 1)
Quarter: 2018Q1

REPORT INFORMATION
  Report Type: Spontaneous
  Country: US (occurrence: US)
  Receive Date: 20180125
  Receipt Date: 20180125
  Transmission Date: 20180509
  Serious: No
  Sender: FDA-Public Use
  Company Number: US-UNITED THERAPEUTICS-UNT-2017-011165

PATIENT
  Age: 70 Year
  Sex: Female
  Weight: 69.84 kg

DRUGS (1)
  1. REMODULIN [Suspect]
     Active Substance: TREPROSTINIL
     Indication: PULMONARY ARTERIAL HYPERTENSION
     Dosage: 0.0404,?G/KG, CONTINUING
     Route: 058
     Dates: start: 20161013

REACTIONS (5)
  - Diarrhoea [Unknown]
  - Hypotension [Unknown]
  - Peripheral swelling [Unknown]
  - Feeling abnormal [Unknown]
  - Dyspnoea [Unknown]

NARRATIVE: CASE EVENT DATE: 20170723
